FAERS Safety Report 19082553 (Version 1)
Quarter: 2021Q2

REPORT INFORMATION
  Report Type: Spontaneous
  Country: IL (occurrence: IL)
  Receive Date: 20210401
  Receipt Date: 20210401
  Transmission Date: 20210717
  Serious: Yes (Other)
  Sender: FDA-Public Use
  Company Number: IL-BAUSCH-BL-2021-009749

PATIENT
  Age: 21 Year
  Sex: Male
  Weight: 76 kg

DRUGS (14)
  1. RIBAVIRIN. [Suspect]
     Active Substance: RIBAVIRIN
     Indication: UPPER RESPIRATORY TRACT INFECTION
  2. CYCLOSPORINE. [Concomitant]
     Active Substance: CYCLOSPORINE
     Indication: RESPIRATORY SYNCYTIAL VIRUS INFECTION
     Route: 048
  3. VORICONAZOLE. [Concomitant]
     Active Substance: VORICONAZOLE
     Indication: RESPIRATORY SYNCYTIAL VIRUS INFECTION
     Route: 048
  4. URSODEOXYCHOLIC ACID [Concomitant]
     Active Substance: URSODIOL
     Indication: RESPIRATORY SYNCYTIAL VIRUS INFECTION
     Route: 048
  5. VITAMIN D [Concomitant]
     Active Substance: VITAMIN D NOS
     Indication: RESPIRATORY SYNCYTIAL VIRUS INFECTION
     Route: 048
  6. RIBAVIRIN. [Suspect]
     Active Substance: RIBAVIRIN
     Indication: RESPIRATORY SYNCYTIAL VIRUS INFECTION
     Dosage: 600 MG IN 3 DIVIDED DOSES DAILY
     Route: 048
  7. BISOPROLOL [Concomitant]
     Active Substance: BISOPROLOL
     Indication: RESPIRATORY SYNCYTIAL VIRUS INFECTION
     Route: 048
  8. LEVOFLOXACIN. [Concomitant]
     Active Substance: LEVOFLOXACIN
     Indication: UPPER RESPIRATORY TRACT INFECTION
  9. PREDNISONE. [Concomitant]
     Active Substance: PREDNISONE
     Indication: RESPIRATORY SYNCYTIAL VIRUS INFECTION
     Route: 048
  10. ACYCLOVIR. [Concomitant]
     Active Substance: ACYCLOVIR
     Indication: RESPIRATORY SYNCYTIAL VIRUS INFECTION
     Route: 048
  11. SULFAMETHOXAZOLE/TRIMETHOPRIM [Concomitant]
     Active Substance: SULFAMETHOXAZOLE\TRIMETHOPRIM
     Indication: RESPIRATORY SYNCYTIAL VIRUS INFECTION
     Route: 048
  12. LEVOFLOXACIN. [Concomitant]
     Active Substance: LEVOFLOXACIN
     Indication: RESPIRATORY SYNCYTIAL VIRUS INFECTION
     Route: 042
  13. RAMIPRIL. [Concomitant]
     Active Substance: RAMIPRIL
     Indication: RESPIRATORY SYNCYTIAL VIRUS INFECTION
     Route: 048
  14. CALCIUM CARBONATE. [Concomitant]
     Active Substance: CALCIUM CARBONATE
     Indication: RESPIRATORY SYNCYTIAL VIRUS INFECTION
     Route: 048

REACTIONS (2)
  - Hyperuricaemia [Recovered/Resolved]
  - Acute kidney injury [Recovered/Resolved]
